FAERS Safety Report 5264518-4 (Version None)
Quarter: 2007Q1

REPORT INFORMATION
  Report Type: 
  Country: None (occurrence: None)
  Receive Date: 20061213
  Receipt Date: 20050415
  Transmission Date: 20070707
  Serious: Yes (Other)
  Sender: FDA-Public Use
  Company Number: 2005UW05973

PATIENT
  Age: 78 Year
  Sex: Male
  Weight: 82.55 kg

DRUGS (4)
  1. IRESSA [Suspect]
     Indication: NON-SMALL CELL LUNG CANCER
     Dates: start: 20031101
  2. XANAX [Concomitant]
  3. ZOLOFT [Concomitant]
  4. BENADRYL ^PARKE DAVIS^ /AUT/ [Concomitant]

REACTIONS (3)
  - DIARRHOEA [None]
  - DRUG HYPERSENSITIVITY [None]
  - PHOTOSENSITIVITY REACTION [None]
